FAERS Safety Report 25499366 (Version 1)
Quarter: 2025Q3

REPORT INFORMATION
  Report Type: Spontaneous
  Country: US (occurrence: US)
  Receive Date: 20250701
  Receipt Date: 20250701
  Transmission Date: 20251021
  Serious: Yes (Life-Threatening, Other)
  Sender: PFIZER
  Company Number: US-PFIZER INC-202500129311

PATIENT
  Age: 15 Year
  Sex: Male
  Weight: 71.7 kg

DRUGS (30)
  1. VANCOMYCIN HYDROCHLORIDE [Suspect]
     Active Substance: VANCOMYCIN HYDROCHLORIDE
     Indication: Aspergillus infection
     Dates: start: 20230122, end: 20230130
  2. VANCOMYCIN HYDROCHLORIDE [Suspect]
     Active Substance: VANCOMYCIN HYDROCHLORIDE
     Dates: start: 20230202, end: 20230206
  3. VANCOMYCIN HYDROCHLORIDE [Suspect]
     Active Substance: VANCOMYCIN HYDROCHLORIDE
     Dates: start: 20230215, end: 20230216
  4. VANCOMYCIN HYDROCHLORIDE [Suspect]
     Active Substance: VANCOMYCIN HYDROCHLORIDE
     Dates: start: 20230219, end: 20230222
  5. VANCOMYCIN HYDROCHLORIDE [Suspect]
     Active Substance: VANCOMYCIN HYDROCHLORIDE
     Dates: start: 20230306, end: 20230310
  6. VANCOMYCIN HYDROCHLORIDE [Suspect]
     Active Substance: VANCOMYCIN HYDROCHLORIDE
     Dates: start: 20230403, end: 20230409
  7. FLUCONAZOLE [Suspect]
     Active Substance: FLUCONAZOLE
     Indication: Aspergillus infection
     Dates: start: 20230113, end: 20230119
  8. FLUCONAZOLE [Suspect]
     Active Substance: FLUCONAZOLE
     Dates: start: 20230121, end: 20230131
  9. METRONIDAZOLE [Suspect]
     Active Substance: METRONIDAZOLE
     Indication: Aspergillus infection
     Dates: start: 20230122, end: 20230130
  10. METRONIDAZOLE [Suspect]
     Active Substance: METRONIDAZOLE
     Dates: start: 20230313, end: 20230406
  11. PIPERACILLIN SODIUM\TAZOBACTAM SODIUM [Suspect]
     Active Substance: PIPERACILLIN SODIUM\TAZOBACTAM SODIUM
     Indication: Aspergillus infection
     Dates: start: 20230109, end: 20230122
  12. PIPERACILLIN SODIUM\TAZOBACTAM SODIUM [Suspect]
     Active Substance: PIPERACILLIN SODIUM\TAZOBACTAM SODIUM
     Dates: start: 20230303, end: 20230314
  13. MEROPENEM [Suspect]
     Active Substance: MEROPENEM
     Indication: Aspergillus infection
     Dates: start: 20230130, end: 20230222
  14. DOXYCYCLINE HYCLATE [Suspect]
     Active Substance: DOXYCYCLINE HYCLATE
     Indication: Aspergillus infection
     Dates: start: 20230420, end: 20230427
  15. SULFAMETHOXAZOLE\TRIMETHOPRIM [Suspect]
     Active Substance: SULFAMETHOXAZOLE\TRIMETHOPRIM
     Indication: Aspergillus infection
     Dates: start: 20230202, end: 20230215
  16. SULFAMETHOXAZOLE\TRIMETHOPRIM [Suspect]
     Active Substance: SULFAMETHOXAZOLE\TRIMETHOPRIM
     Dates: start: 20230306, end: 20230314
  17. SULFAMETHOXAZOLE\TRIMETHOPRIM [Suspect]
     Active Substance: SULFAMETHOXAZOLE\TRIMETHOPRIM
     Dates: start: 20230407, end: 20230414
  18. VORICONAZOLE [Suspect]
     Active Substance: VORICONAZOLE
     Indication: Aspergillus infection
     Dates: start: 20230202, end: 20230203
  19. VORICONAZOLE [Suspect]
     Active Substance: VORICONAZOLE
     Dates: start: 20230206, end: 20230302
  20. CEFEPIME [Suspect]
     Active Substance: CEFEPIME HYDROCHLORIDE
     Indication: Aspergillus infection
     Dates: start: 20230122, end: 20230130
  21. MICAFUNGIN [Suspect]
     Active Substance: MICAFUNGIN SODIUM
     Indication: Aspergillus infection
     Dates: start: 20230201, end: 20230202
  22. MICAFUNGIN [Suspect]
     Active Substance: MICAFUNGIN SODIUM
     Dates: start: 20230213, end: 20230406
  23. MICAFUNGIN [Suspect]
     Active Substance: MICAFUNGIN SODIUM
     Dates: start: 20230419
  24. ERTAPENEM [Suspect]
     Active Substance: ERTAPENEM
     Indication: Aspergillus infection
     Dates: start: 20230407
  25. MINOCYCLINE [Suspect]
     Active Substance: MINOCYCLINE HYDROCHLORIDE
     Indication: Aspergillus infection
     Dates: start: 20230215, end: 20230222
  26. CEFIDEROCOL [Suspect]
     Active Substance: CEFIDEROCOL
     Indication: Aspergillus infection
     Dates: start: 20230313, end: 20230406
  27. ISAVUCONAZONIUM [Suspect]
     Active Substance: ISAVUCONAZONIUM
     Indication: Aspergillus infection
     Dates: start: 20230302
  28. AMPHOTERICIN B [Suspect]
     Active Substance: AMPHOTERICIN B
     Indication: Aspergillus infection
     Dates: start: 20230203, end: 20230222
  29. GANCICLOVIR [Suspect]
     Active Substance: GANCICLOVIR
     Indication: Aspergillus infection
     Dates: start: 20230223, end: 20230312
  30. CIDOFOVIR [Suspect]
     Active Substance: CIDOFOVIR
     Indication: Aspergillus infection
     Dates: start: 20230329, end: 20230405

REACTIONS (1)
  - Drug ineffective [Unknown]
